FAERS Safety Report 26207920 (Version 1)
Quarter: 2025Q4

REPORT INFORMATION
  Report Type: Spontaneous
  Country: EU (occurrence: EU)
  Receive Date: 20251229
  Receipt Date: 20251229
  Transmission Date: 20260118
  Serious: Yes (Hospitalization, Other)
  Sender: MYLAN
  Company Number: EU-EMB-M202411049-1

PATIENT
  Sex: Female
  Weight: 85 kg

DRUGS (9)
  1. LYRICA [Suspect]
     Active Substance: PREGABALIN
     Indication: Anxiety disorder
     Dosage: 300 MILLIGRAM, QD (AT THE ONSET OF PREGNANCY,)
     Route: 061
     Dates: start: 202411
  2. LYRICA [Suspect]
     Active Substance: PREGABALIN
     Dosage: 150 MILLIGRAM, QD (DOSAGE REDUCED TO 150 MG/D IN THE COURSE OF PREGNANCY)
     Route: 061
     Dates: end: 202508
  3. METOPROLOL [Suspect]
     Active Substance: METOPROLOL
     Indication: Postural orthostatic tachycardia syndrome
     Dosage: 23.75 MILLIGRAM, QD
     Route: 061
     Dates: start: 202502, end: 202508
  4. DULOXETINE [Suspect]
     Active Substance: DULOXETINE
     Indication: Anxiety disorder
     Dosage: 90 MILLIGRAM, QD (AT THE ONSET OF PREGNANCY)
     Route: 061
     Dates: start: 202411
  5. DULOXETINE [Suspect]
     Active Substance: DULOXETINE
     Dosage: 120 MILLIGRAM, QD (DOSAGE INCREASED TO 120 MG/D IN THE COURSE OF PREGNANCY)
     Route: 061
     Dates: end: 202508
  6. METFORMIN [Suspect]
     Active Substance: METFORMIN HYDROCHLORIDE
     Indication: Type 2 diabetes mellitus
     Dosage: 2000 MILLIGRAM, QD (AT THE ONSET OF PREGNANCY)
     Route: 061
     Dates: start: 202411
  7. METFORMIN [Suspect]
     Active Substance: METFORMIN HYDROCHLORIDE
     Dosage: 1000 MILLIGRAM, QD (DOSAGE REDUCED TO 1000 MG/D IN THE COURSE OF PREGNANCY)
     Route: 061
     Dates: end: 202508
  8. TAVOR (LORAZEPAM) [Suspect]
     Active Substance: LORAZEPAM
     Indication: Anxiety disorder
     Dosage: 2.5 MG, PRN (CONFLICTING REPORTS WHEN STARTED: STARTED THE LATEST FROM GW 5, POSSIBLY ALREADY)
     Route: 061
  9. IVABRADINE [Concomitant]
     Active Substance: IVABRADINE
     Indication: Postural orthostatic tachycardia syndrome
     Dosage: 5 MILLIGRAM, QD
     Route: 061
     Dates: start: 202411, end: 202502

REACTIONS (2)
  - Foetal death [Recovered/Resolved with Sequelae]
  - Maternal exposure during pregnancy [Unknown]

NARRATIVE: CASE EVENT DATE: 20250801
